FAERS Safety Report 16822975 (Version 1)
Quarter: 2019Q3

REPORT INFORMATION
  Report Type: Report from Study
  Country: AR (occurrence: AR)
  Receive Date: 20190918
  Receipt Date: 20190918
  Transmission Date: 20191005
  Serious: Yes (Hospitalization, Other)
  Sender: FDA-Public Use
  Company Number: AR-ASTRAZENECA-2019SF31323

PATIENT
  Age: 14534 Day
  Sex: Female

DRUGS (1)
  1. OLAPARIB. [Suspect]
     Active Substance: OLAPARIB
     Indication: OVARIAN CANCER
     Route: 048
     Dates: start: 20180201

REACTIONS (4)
  - Metastasis [Unknown]
  - Malignant neoplasm progression [Unknown]
  - Large intestinal obstruction [Unknown]
  - Intestinal mass [Unknown]

NARRATIVE: CASE EVENT DATE: 20190813
